FAERS Safety Report 6795007-3 (Version None)
Quarter: 2010Q2

REPORT INFORMATION
  Report Type: 
  Country: None (occurrence: None)
  Receive Date: 20100625
  Receipt Date: 20090924
  Transmission Date: 20101027
  Serious: Yes (Life-Threatening, Hospitalization)
  Sender: FDA-Public Use
  Company Number: FR-ROCHE-580613

PATIENT
  Sex: Male

DRUGS (14)
  1. CAPECITABINE [Suspect]
     Indication: METASTATIC GASTRIC CANCER
     Dosage: CYCLE 1
     Route: 048
     Dates: start: 20080221
  2. CAPECITABINE [Suspect]
     Dosage: CYCLE 2
     Route: 048
     Dates: start: 20080506
  3. CAPECITABINE [Suspect]
     Route: 048
     Dates: start: 20080602, end: 20080616
  4. CAPECITABINE [Suspect]
     Route: 048
     Dates: start: 20080722
  5. EPIRUBICIN [Suspect]
     Indication: METASTATIC GASTRIC CANCER
     Dosage: CYCLE 1
     Route: 042
     Dates: start: 20080221
  6. EPIRUBICIN [Suspect]
     Dosage: CYCLE 2
     Route: 042
     Dates: start: 20080506
  7. EPIRUBICIN [Suspect]
     Route: 042
     Dates: start: 20080602, end: 20080602
  8. EPIRUBICIN [Suspect]
     Route: 042
     Dates: start: 20080722
  9. CISPLATIN [Suspect]
     Indication: METASTATIC GASTRIC CANCER
     Dosage: CYCLE 1
     Route: 042
     Dates: start: 20080221
  10. CISPLATIN [Suspect]
     Route: 042
     Dates: start: 20080506
  11. CISPLATIN [Suspect]
     Route: 042
     Dates: start: 20080602, end: 20080602
  12. CISPLATIN [Suspect]
     Route: 042
     Dates: start: 20090722
  13. ARANESP [Concomitant]
     Dates: start: 20080320, end: 20080410
  14. GRANOCYTE 34 [Concomitant]
     Dosage: TDD: 1 INJ/ 6 DAYS
     Dates: start: 20080325, end: 20080421

REACTIONS (3)
  - FEBRILE BONE MARROW APLASIA [None]
  - FEBRILE NEUTROPENIA [None]
  - PYREXIA [None]
